FAERS Safety Report 16965418 (Version 1)
Quarter: 2019Q4

REPORT INFORMATION
  Report Type: Spontaneous
  Country: DE (occurrence: DE)
  Receive Date: 20191028
  Receipt Date: 20191028
  Transmission Date: 20200122
  Serious: Yes (Hospitalization)
  Sender: FDA-Public Use
  Company Number: DE-PFIZER INC-2019459617

PATIENT

DRUGS (10)
  1. TAVOR (LORAZEPAM) [Interacting]
     Active Substance: LORAZEPAM
     Indication: ANXIETY
  2. ASPIRIN [ACETYLSALICYLIC ACID] [Concomitant]
     Active Substance: ASPIRIN
     Indication: ISCHAEMIC HEART DISEASE PROPHYLAXIS
     Dosage: 100 MG, QD
     Route: 065
     Dates: start: 2006
  3. TAVOR (LORAZEPAM) [Interacting]
     Active Substance: LORAZEPAM
     Indication: PALPITATIONS
  4. TAVOR (LORAZEPAM) [Interacting]
     Active Substance: LORAZEPAM
     Indication: PANIC ATTACK
  5. TAVOR (LORAZEPAM) [Interacting]
     Active Substance: LORAZEPAM
     Indication: BLOOD PRESSURE FLUCTUATION
  6. TAVOR (LORAZEPAM) [Interacting]
     Active Substance: LORAZEPAM
     Indication: NAUSEA
  7. BISOPROLOL 1A PHARMA [Concomitant]
     Active Substance: BISOPROLOL
     Indication: HYPERTENSION
     Dosage: UNK
     Route: 065
  8. TAVOR (LORAZEPAM) [Suspect]
     Active Substance: LORAZEPAM
     Indication: TREMOR
     Dosage: UNK
     Route: 065
     Dates: start: 20190914
  9. PREGABALIN GLENMARK [Interacting]
     Active Substance: PREGABALIN
     Indication: NEURALGIA
     Dosage: 150 MG, QD (2 HARD CAPSULES/DAY)
     Route: 048
     Dates: start: 20190913, end: 20190914
  10. CANDESARTAN. [Concomitant]
     Active Substance: CANDESARTAN
     Indication: HYPERTENSION
     Dosage: UNK
     Route: 065

REACTIONS (8)
  - Nausea [Recovered/Resolved]
  - Palpitations [Recovered/Resolved]
  - Potentiating drug interaction [Unknown]
  - Anxiety [Recovered/Resolved]
  - Blood pressure fluctuation [Recovering/Resolving]
  - Tremor [Not Recovered/Not Resolved]
  - Panic attack [Not Recovered/Not Resolved]
  - Therapy cessation [Unknown]

NARRATIVE: CASE EVENT DATE: 20190914
